FAERS Safety Report 24739496 (Version 1)
Quarter: 2024Q4

REPORT INFORMATION
  Report Type: Spontaneous
  Country: JP (occurrence: JP)
  Receive Date: 20241216
  Receipt Date: 20241216
  Transmission Date: 20250115
  Serious: Yes (Other)
  Sender: NIVAGEN PHARMACEUTICALS INC
  Company Number: JP-NPI-000073

PATIENT
  Age: 65 Year
  Sex: Male

DRUGS (1)
  1. TEMOZOLOMIDE [Suspect]
     Active Substance: TEMOZOLOMIDE
     Indication: Glioblastoma
     Route: 065

REACTIONS (3)
  - Cerebral venous sinus thrombosis [Unknown]
  - Subarachnoid haemorrhage [Unknown]
  - Disorientation [Recovered/Resolved]
